FAERS Safety Report 5075626-5 (Version None)
Quarter: 2006Q3

REPORT INFORMATION
  Report Type: 
  Country: None (occurrence: None)
  Receive Date: 20060807
  Receipt Date: 20060726
  Transmission Date: 20061208
  Serious: Yes (Death)
  Sender: FDA-Public Use
  Company Number: S06-USA-02936-01

PATIENT
  Age: 27 Year
  Sex: Male

DRUGS (1)
  1. LEXAPRO [Suspect]
     Dates: end: 20030223

REACTIONS (1)
  - COMPLETED SUICIDE [None]
